FAERS Safety Report 4392091-1 (Version None)
Quarter: 2004Q3

REPORT INFORMATION
  Report Type: 
  Country: None (occurrence: None)
  Receive Date: 20040702
  Receipt Date: 20040702
  Transmission Date: 20050211
  Serious: Yes (Other)
  Sender: FDA-Public Use
  Company Number: None

PATIENT
  Age: 17 Year
  Sex: Male
  Weight: 38.6 kg

DRUGS (1)
  1. DEFEROXAMINE MESYLATE [Suspect]
     Indication: BLOOD IRON INCREASED
     Dosage: 1200 MG 3X/WK OVER 8 HRS SQ
     Route: 058

REACTIONS (1)
  - SKIN IRRITATION [None]
